FAERS Safety Report 17166658 (Version 4)
Quarter: 2020Q1

REPORT INFORMATION
  Report Type: Spontaneous
  Country: FR (occurrence: FR)
  Receive Date: 20191217
  Receipt Date: 20200318
  Transmission Date: 20200409
  Serious: Yes (Life-Threatening, Hospitalization, Other)
  Sender: FDA-Public Use
  Company Number: FR-ALEXION PHARMACEUTICALS INC.-A201918671

PATIENT
  Age: 2 Month
  Sex: Female
  Weight: 4.5 kg

DRUGS (5)
  1. KANUMA [Suspect]
     Active Substance: SEBELIPASE ALFA
     Dosage: 2 MG/KG, FOR THE LAST 15 DAYS
     Route: 065
  2. ATARAX [Concomitant]
     Active Substance: HYDROXYZINE HYDROCHLORIDE
     Indication: PRODUCT USED FOR UNKNOWN INDICATION
     Route: 065
  3. KANUMA [Suspect]
     Active Substance: SEBELIPASE ALFA
     Dosage: 3 MG/KG, UNK
     Route: 065
  4. KANUMA [Suspect]
     Active Substance: SEBELIPASE ALFA
     Dosage: 1 MG/KG, UNK
     Route: 065
  5. KANUMA [Suspect]
     Active Substance: SEBELIPASE ALFA
     Indication: LYSOSOMAL ACID LIPASE DEFICIENCY
     Dosage: 2 MG/ML, QW
     Route: 065
     Dates: start: 20191130

REACTIONS (1)
  - Anaphylactic shock [Recovered/Resolved]

NARRATIVE: CASE EVENT DATE: 20191130
